FAERS Safety Report 8412407-6 (Version None)
Quarter: 2012Q2

REPORT INFORMATION
  Report Type: 
  Country: None (occurrence: None)
  Receive Date: 20120605
  Receipt Date: 20120530
  Transmission Date: 20120825
  Serious: Yes (Death, Other)
  Sender: FDA-Public Use
  Company Number: JP-ELI_LILLY_AND_COMPANY-JP201204004029

PATIENT

DRUGS (17)
  1. RABEPRAZOLE SODIUM [Concomitant]
     Dosage: 1 DF, QD
     Route: 048
  2. ISOSORBIDE DINITRATE [Concomitant]
     Dosage: 40 ML, TID
  3. DIOVAN [Concomitant]
     Dosage: 1 DF, QD
     Route: 048
  4. DECADRON [Concomitant]
     Dosage: 3 DF, BID
     Route: 048
  5. DECADRON [Concomitant]
     Dosage: 4 DF, TID
     Route: 048
  6. DEPAS [Concomitant]
     Dosage: 1 DF, QD
     Route: 048
  7. LOXOPROFEN [Concomitant]
     Dosage: 1 DF, TID
     Route: 048
  8. TAMSULOSIN HCL [Concomitant]
     Dosage: 1 DF, QD
     Route: 048
  9. ALIMTA [Suspect]
     Indication: LUNG ADENOCARCINOMA STAGE IV
     Dosage: 1000 MG, UNK
     Route: 042
     Dates: start: 20111122, end: 20120326
  10. TAMSULOSIN HCL [Concomitant]
     Dosage: 1 DF, QD
     Route: 048
  11. LASIX [Concomitant]
     Dosage: 1 DF, BID
     Route: 048
  12. ZOPICOOL [Concomitant]
     Dosage: 1 DF, QD
     Route: 048
  13. ASPIRIN [Concomitant]
     Dosage: 1 DF, QD
     Route: 048
  14. CARBOPLATIN [Concomitant]
     Indication: LUNG ADENOCARCINOMA STAGE IV
     Dosage: 550 MG, UNK
     Dates: start: 20111122, end: 20120326
  15. FOLIAMIN [Concomitant]
     Dosage: 0.1 DF, QD
     Route: 048
  16. AMLODINE [Concomitant]
     Dosage: 1 DF, BID
     Route: 048
  17. CRESTOR [Concomitant]
     Dosage: 1 DF, QD
     Route: 048

REACTIONS (10)
  - FEBRILE NEUTROPENIA [None]
  - RENAL FAILURE [None]
  - CARDIAC FAILURE [None]
  - DIVERTICULITIS [None]
  - PLATELET COUNT DECREASED [None]
  - LIVER DISORDER [None]
  - BONE MARROW FAILURE [None]
  - PYREXIA [None]
  - INFECTION [None]
  - NEUTROPHIL COUNT DECREASED [None]
